FAERS Safety Report 6236809-1 (Version None)
Quarter: 2009Q2

REPORT INFORMATION
  Report Type: 
  Country: None (occurrence: None)
  Receive Date: 20090619
  Receipt Date: 20090608
  Transmission Date: 20091009
  Serious: Yes (Other)
  Sender: FDA-Public Use
  Company Number: US-AMGEN-STX350637

PATIENT
  Sex: Male

DRUGS (2)
  1. VECTIBIX [Suspect]
     Indication: COLORECTAL CANCER
     Route: 042
     Dates: start: 20090413, end: 20090526
  2. IRINOTECAN HCL [Concomitant]
     Dates: start: 20090401

REACTIONS (2)
  - FEELING ABNORMAL [None]
  - RASH [None]
